FAERS Safety Report 26076114 (Version 1)
Quarter: 2025Q4

REPORT INFORMATION
  Report Type: Spontaneous
  Country: US (occurrence: US)
  Receive Date: 20251121
  Receipt Date: 20251121
  Transmission Date: 20260117
  Serious: No
  Sender: ALEXION PHARMACEUTICALS
  Company Number: US-AstraZeneca-CH-00996222AP

PATIENT
  Age: 81 Year
  Sex: Female

DRUGS (1)
  1. BREZTRI [Suspect]
     Active Substance: BUDESONIDE\FORMOTEROL\GLYCOPYRROLATE
     Dosage: 160 UNK
     Route: 065

REACTIONS (4)
  - Product dose omission issue [Unknown]
  - Adverse reaction [Unknown]
  - Device defective [Unknown]
  - Device defective [Unknown]

NARRATIVE: CASE EVENT DATE: 20251101
